FAERS Safety Report 4385506-6 (Version None)
Quarter: 2004Q2

REPORT INFORMATION
  Report Type: 
  Country: None (occurrence: None)
  Receive Date: 20040622
  Receipt Date: 20040609
  Transmission Date: 20050107
  Serious: Yes (Death, Hospitalization)
  Sender: FDA-Public Use
  Company Number: DE9199810OCT2002

PATIENT
  Age: 43 Year
  Sex: Male

DRUGS (8)
  1. RAPAMUNE [Suspect]
     Indication: LUNG TRANSPLANT
     Dosage: SEE IMAGE
     Route: 048
     Dates: start: 20020701, end: 20020701
  2. RAPAMUNE [Suspect]
     Indication: LUNG TRANSPLANT
     Dosage: SEE IMAGE
     Route: 048
     Dates: end: 20020825
  3. RAPAMUNE [Suspect]
     Indication: LUNG TRANSPLANT
     Dosage: SEE IMAGE
     Route: 048
     Dates: start: 20020702
  4. PREDNISOLONE [Suspect]
     Indication: LUNG TRANSPLANT
     Dosage: 5 MG 2X PER 1 DAY ORAL
     Route: 048
  5. TACROLIMUS [Concomitant]
  6. ITRAZONAZOLE [Concomitant]
  7. CIPROFLOXACIN HCL [Concomitant]
  8. VANCOMYCIN [Concomitant]

REACTIONS (24)
  - ALANINE AMINOTRANSFERASE INCREASED [None]
  - ASPARTATE AMINOTRANSFERASE INCREASED [None]
  - ATRIAL FIBRILLATION [None]
  - BIOPSY BRONCHUS ABNORMAL [None]
  - BLOOD ALKALINE PHOSPHATASE INCREASED [None]
  - BRONCHOPULMONARY ASPERGILLOSIS [None]
  - DIFFERENTIAL WHITE BLOOD CELL COUNT ABNORMAL [None]
  - DRUG LEVEL CHANGED [None]
  - HEPATIC FUNCTION ABNORMAL [None]
  - IMPAIRED HEALING [None]
  - LUNG INFECTION PSEUDOMONAL [None]
  - LUNG INFILTRATION [None]
  - LUNG TRANSPLANT [None]
  - LUNG TRANSPLANT REJECTION [None]
  - MULTI-ORGAN FAILURE [None]
  - NECROSIS [None]
  - OPERATIVE HAEMORRHAGE [None]
  - PNEUMONIA STAPHYLOCOCCAL [None]
  - POST PROCEDURAL COMPLICATION [None]
  - RENAL FAILURE [None]
  - SUPRAVENTRICULAR TACHYCARDIA [None]
  - SURGICAL PROCEDURE REPEATED [None]
  - THROMBOCYTOPENIA [None]
  - WOUND DEHISCENCE [None]
